FAERS Safety Report 15268374 (Version 1)
Quarter: 2018Q3

REPORT INFORMATION
  Report Type: Spontaneous
  Country: US (occurrence: US)
  Receive Date: 20180726
  Receipt Date: 20180726
  Transmission Date: 20181010
  Serious: Yes (Other)
  Sender: FDA-Public Use
  Company Number: None

PATIENT
  Age: 36 Year
  Sex: Female

DRUGS (8)
  1. RIZATRIPTAN. [Concomitant]
     Active Substance: RIZATRIPTAN
  2. FOLIC ACID. [Concomitant]
     Active Substance: FOLIC ACID
  3. SYNTHROID [Concomitant]
     Active Substance: LEVOTHYROXINE SODIUM
  4. METHOTREXATE. [Concomitant]
     Active Substance: METHOTREXATE
  5. TALTZ [Suspect]
     Active Substance: IXEKIZUMAB
     Indication: PSORIASIS
     Dosage: ?          OTHER FREQUENCY:Q2WFROM WK4?WK10;?
     Route: 058
     Dates: start: 20180425
  6. CELEXA [Concomitant]
     Active Substance: CITALOPRAM HYDROBROMIDE
  7. LISINOPRIL. [Concomitant]
     Active Substance: LISINOPRIL
  8. BUPROPION. [Concomitant]
     Active Substance: BUPROPION

REACTIONS (2)
  - Drug dose omission [None]
  - Bronchitis [None]

NARRATIVE: CASE EVENT DATE: 20180725
